FAERS Safety Report 9985037 (Version 1)
Quarter: 2014Q1

REPORT INFORMATION
  Report Type: Report from Study
  Country: US (occurrence: US)
  Receive Date: 20140307
  Receipt Date: 20140307
  Transmission Date: 20141002
  Serious: No
  Sender: FDA-Public Use
  Company Number: US-ABBVIE-14P-163-1187681-00

PATIENT
  Age: 4 Year
  Sex: Female

DRUGS (5)
  1. HUMIRA [Suspect]
     Indication: JUVENILE IDIOPATHIC ARTHRITIS
     Dates: start: 20131107
  2. PREDNISOLONE ACETATE [Concomitant]
     Indication: UVEITIS
     Dosage: EYE DROPS IN EACH EYE
  3. PREDNISOLONE ACETATE [Concomitant]
     Indication: IRITIS
  4. ATROPINE [Concomitant]
     Indication: UVEITIS
     Dosage: EYE DROPS IN EACH EYE
  5. ATROPINE [Concomitant]
     Indication: IRITIS

REACTIONS (2)
  - Pruritus [Recovered/Resolved]
  - Erythema [Recovered/Resolved]
